FAERS Safety Report 16380304 (Version 1)
Quarter: 2019Q2

REPORT INFORMATION
  Report Type: Spontaneous
  Country: US (occurrence: US)
  Receive Date: 20190601
  Receipt Date: 20190601
  Transmission Date: 20190711
  Serious: Yes (Hospitalization, Other)
  Sender: FDA-Public Use
  Company Number: US-APOTEX-2019AP015275

PATIENT
  Sex: Male

DRUGS (7)
  1. LAMOTRIGINE. [Suspect]
     Active Substance: LAMOTRIGINE
     Indication: AFFECTIVE DISORDER
     Dosage: 100 MG, BID
     Route: 048
  2. CLOZAPINE. [Concomitant]
     Active Substance: CLOZAPINE
     Indication: SCHIZOPHRENIA
     Dosage: 225 MG, Q.AM
     Route: 048
  3. LAMOTRIGINE. [Suspect]
     Active Substance: LAMOTRIGINE
     Indication: SEIZURE PROPHYLAXIS
  4. CLOZAPINE. [Concomitant]
     Active Substance: CLOZAPINE
     Dosage: 400 MG, Q.H.S.
     Route: 048
  5. DESMOPRESSIN [Suspect]
     Active Substance: DESMOPRESSIN
     Indication: URINARY INCONTINENCE
     Dosage: 0.2 MG, EVERY BEDTIME
     Route: 048
  6. FLUOXETINE [Suspect]
     Active Substance: FLUOXETINE HYDROCHLORIDE
     Indication: AFFECTIVE DISORDER
     Dosage: 10 MG, UNK
     Route: 048
  7. MELOXICAM. [Suspect]
     Active Substance: MELOXICAM
     Indication: ARTHRALGIA
     Dosage: 15 MG, QD
     Route: 048

REACTIONS (5)
  - Drug interaction [Unknown]
  - Hyponatraemia [Unknown]
  - Generalised tonic-clonic seizure [Recovered/Resolved]
  - Water intoxication [Unknown]
  - Therapeutic response decreased [Unknown]
